FAERS Safety Report 18476202 (Version 5)
Quarter: 2021Q4

REPORT INFORMATION
  Report Type: Spontaneous
  Country: DE (occurrence: DE)
  Receive Date: 20201107
  Receipt Date: 20211125
  Transmission Date: 20220303
  Serious: Yes (Hospitalization, Other)
  Sender: FDA-Public Use
  Company Number: DE-002147023-NVSC2020DE053871

PATIENT
  Sex: Female

DRUGS (11)
  1. LETROZOLE [Suspect]
     Active Substance: LETROZOLE
     Indication: Breast cancer metastatic
     Dosage: 2.5 MG, QD (DAILY)
     Route: 048
     Dates: start: 20190201
  2. KISQALI [Suspect]
     Active Substance: RIBOCICLIB
     Indication: Breast cancer metastatic
     Dosage: 600 MG, QD (SCHEMA 21 DAYS INTAKE, THAN 7 DAYS PAUSE)
     Route: 048
     Dates: start: 20190201, end: 20190424
  3. KISQALI [Suspect]
     Active Substance: RIBOCICLIB
     Dosage: 400 MG, QD (SCHEMA 21 DAYS INTAKE, THAN 7 DAYS PAUSE)
     Route: 048
     Dates: start: 20190430
  4. TORSEMIDE [Suspect]
     Active Substance: TORSEMIDE
     Indication: Hypertension
     Dosage: 5 MG, QD
     Route: 048
  5. TORSEMIDE [Suspect]
     Active Substance: TORSEMIDE
     Indication: Oedema peripheral
     Dosage: 10 MG, QD (, 1-0-0 )
     Route: 048
     Dates: start: 2019
  6. TORSEMIDE [Suspect]
     Active Substance: TORSEMIDE
     Dosage: 10 MG, QD
     Route: 048
     Dates: start: 20200206
  7. TORSEMIDE [Suspect]
     Active Substance: TORSEMIDE
     Dosage: 10 MG, QD
     Route: 048
     Dates: start: 20200311
  8. METOPROLOL [Concomitant]
     Active Substance: METOPROLOL
     Indication: Hypertension
     Dosage: 95 MG, BID (ONCE IN THE MORNING, ONCE IN THE EVENING)
     Route: 048
  9. NITRENDIPINE [Concomitant]
     Active Substance: NITRENDIPINE
     Indication: Hypertension
     Dosage: 10 MG, PRN (AS NEEDED, }150 MMHG SYSTOLIC)
     Route: 048
     Dates: start: 20190207
  10. NITRENDIPINE [Concomitant]
     Active Substance: NITRENDIPINE
     Dosage: 1 DF (BLOOD PRESSURE }180MMHG)
     Route: 048
  11. LOSARTAN [Concomitant]
     Active Substance: LOSARTAN
     Indication: Hypertension
     Dosage: 100 MG, QD (ONCE IN THE MORNING)
     Route: 048

REACTIONS (8)
  - Hypertensive crisis [Recovered/Resolved]
  - Hypokalaemia [Recovered/Resolved]
  - Blood pressure fluctuation [Not Recovered/Not Resolved]
  - Peripheral venous disease [Not Recovered/Not Resolved]
  - Oedema peripheral [Recovered/Resolved]
  - Fatigue [Not Recovered/Not Resolved]
  - Goitre [Not Recovered/Not Resolved]
  - Chills [Recovered/Resolved]

NARRATIVE: CASE EVENT DATE: 20190322
